FAERS Safety Report 9155418 (Version 3)
Quarter: 2013Q1

REPORT INFORMATION
  Report Type: Spontaneous
  Country: ES (occurrence: ES)
  Receive Date: 20130311
  Receipt Date: 20130320
  Transmission Date: 20140127
  Serious: Yes (Hospitalization, Other)
  Sender: FDA-Public Use
  Company Number: ES-VERTEX PHARMACEUTICALS INC.-2013-003294

PATIENT
  Age: 63 Year
  Sex: Male

DRUGS (5)
  1. INCIVO [Suspect]
     Indication: HEPATITIS C
     Dosage: (3-0-3)
     Route: 048
     Dates: start: 20130114, end: 20130211
  2. RIBAVIRIN [Suspect]
     Indication: HEPATITIS C
     Dosage: DOSAGE FORM: UNSPECIFIED, 2-0-3
     Route: 048
     Dates: start: 20130114, end: 20130211
  3. PEGINTERFERON ALFA [Suspect]
     Indication: HEPATITIS C
     Dosage: DOSAGE FORM: UNSPECIFIED
     Route: 058
     Dates: start: 20130114, end: 20130211
  4. LOSARTAN+HYDROCHLOROTHIAZIDE [Concomitant]
     Indication: HYPERTENSION
     Dosage: DOSAGE FORM: UNSPECIFIED, 50MG/12.5MG
     Route: 065
     Dates: start: 20130114, end: 20130208
  5. LOSARTAN+HYDROCHLOROTHIAZIDE [Concomitant]
     Dosage: DOSAGE FORM: UNSPECIFIED, 100MG/25MG
     Route: 065
     Dates: end: 20130114

REACTIONS (2)
  - Atrial fibrillation [Recovered/Resolved]
  - Syncope [Recovered/Resolved]
